FAERS Safety Report 24582248 (Version 1)
Quarter: 2024Q4

REPORT INFORMATION
  Report Type: Spontaneous
  Country: US (occurrence: US)
  Receive Date: 20241105
  Receipt Date: 20241105
  Transmission Date: 20250114
  Serious: Yes (Hospitalization, Other)
  Sender: MARKSANS PHARMA LIMITED
  Company Number: US-MARKSANS PHARMA LIMITED-MPL202400082

PATIENT
  Sex: Female

DRUGS (20)
  1. FLUOXETINE [Suspect]
     Active Substance: FLUOXETINE HYDROCHLORIDE
     Indication: Generalised anxiety disorder
     Dosage: UNK
     Route: 065
  2. FLUOXETINE [Suspect]
     Active Substance: FLUOXETINE HYDROCHLORIDE
     Indication: Depression
  3. FLUOXETINE [Suspect]
     Active Substance: FLUOXETINE HYDROCHLORIDE
     Indication: Panic attack
  4. FLUOXETINE [Suspect]
     Active Substance: FLUOXETINE HYDROCHLORIDE
     Indication: Drug use disorder
  5. QUETIAPINE [Suspect]
     Active Substance: QUETIAPINE
     Indication: Generalised anxiety disorder
     Dosage: UNK
     Route: 065
  6. QUETIAPINE [Suspect]
     Active Substance: QUETIAPINE
     Indication: Depression
  7. QUETIAPINE [Suspect]
     Active Substance: QUETIAPINE
     Indication: Panic attack
  8. QUETIAPINE [Suspect]
     Active Substance: QUETIAPINE
     Indication: Drug use disorder
  9. CLONAZEPAM [Suspect]
     Active Substance: CLONAZEPAM
     Indication: Generalised anxiety disorder
     Dosage: UNK
     Route: 065
  10. CLONAZEPAM [Suspect]
     Active Substance: CLONAZEPAM
     Indication: Depression
  11. CLONAZEPAM [Suspect]
     Active Substance: CLONAZEPAM
     Indication: Panic attack
  12. CLONAZEPAM [Suspect]
     Active Substance: CLONAZEPAM
     Indication: Drug use disorder
  13. HYDROMORPHONE [Suspect]
     Active Substance: HYDROMORPHONE
     Indication: Generalised anxiety disorder
     Dosage: UNK
     Route: 065
  14. HYDROMORPHONE [Suspect]
     Active Substance: HYDROMORPHONE
     Indication: Depression
  15. HYDROMORPHONE [Suspect]
     Active Substance: HYDROMORPHONE
     Indication: Panic attack
  16. HYDROMORPHONE [Suspect]
     Active Substance: HYDROMORPHONE
     Indication: Drug use disorder
  17. OXYCODONE [Suspect]
     Active Substance: OXYCODONE
     Indication: Generalised anxiety disorder
     Dosage: UNK
     Route: 065
  18. OXYCODONE [Suspect]
     Active Substance: OXYCODONE
     Indication: Depression
  19. OXYCODONE [Suspect]
     Active Substance: OXYCODONE
     Indication: Panic attack
  20. OXYCODONE [Suspect]
     Active Substance: OXYCODONE
     Indication: Drug use disorder

REACTIONS (2)
  - Premature delivery [Unknown]
  - Exposure during pregnancy [Unknown]
